FAERS Safety Report 5043716-9 (Version None)
Quarter: 2006Q3

REPORT INFORMATION
  Report Type: 
  Country: None (occurrence: None)
  Receive Date: 20060706
  Receipt Date: 20060623
  Transmission Date: 20061208
  Serious: Yes (Hospitalization, Other)
  Sender: FDA-Public Use
  Company Number: US-AMGEN-STX184182

PATIENT
  Sex: Female

DRUGS (2)
  1. ENBREL [Suspect]
     Indication: RHEUMATOID ARTHRITIS
     Route: 058
     Dates: start: 20010701
  2. METHOTREXATE [Concomitant]
     Dates: start: 20010101

REACTIONS (5)
  - COUGH [None]
  - OXYGEN SATURATION DECREASED [None]
  - PULMONARY CONGESTION [None]
  - SINUSITIS [None]
  - SLEEP APNOEA SYNDROME [None]
